FAERS Safety Report 17099855 (Version 2)
Quarter: 2020Q1

REPORT INFORMATION
  Report Type: Spontaneous
  Country: NO (occurrence: NO)
  Receive Date: 20191202
  Receipt Date: 20200204
  Transmission Date: 20200409
  Serious: Yes (Other)
  Sender: FDA-Public Use
  Company Number: NO-ALEXION PHARMACEUTICALS INC.-A201918088

PATIENT
  Age: 54 Year
  Sex: Female

DRUGS (1)
  1. SOLIRIS [Suspect]
     Active Substance: ECULIZUMAB
     Indication: PAROXYSMAL NOCTURNAL HAEMOGLOBINURIA
     Dosage: 900 MG, Q2W
     Route: 042
     Dates: start: 20080509

REACTIONS (1)
  - Cerebellar atrophy [Unknown]

NARRATIVE: CASE EVENT DATE: 201907
